FAERS Safety Report 7470546-0 (Version None)
Quarter: 2011Q2

REPORT INFORMATION
  Report Type: 
  Country: None (occurrence: None)
  Receive Date: 20110510
  Receipt Date: 20110427
  Transmission Date: 20111010
  Serious: Yes (Hospitalization)
  Sender: FDA-Public Use
  Company Number: US-CELGENEUS-163-21880-11031504

PATIENT
  Sex: Male
  Weight: 83.99 kg

DRUGS (11)
  1. REVLIMID [Suspect]
     Indication: MULTIPLE MYELOMA
     Dosage: 5 MILLIGRAM
     Route: 048
     Dates: start: 20100201
  2. TOPROL-XL [Concomitant]
     Dosage: 25 MILLIGRAM
     Route: 048
     Dates: start: 20080101
  3. PERCOCET [Concomitant]
     Dosage: .5 TABLET
     Route: 048
     Dates: start: 20091001
  4. FISH OIL [Concomitant]
     Dosage: 4000 MILLIGRAM
     Route: 048
     Dates: start: 20090101
  5. ZOCOR [Concomitant]
     Dosage: 40 MILLIGRAM
     Route: 048
     Dates: start: 20080101
  6. M.V.I. [Concomitant]
     Route: 048
     Dates: start: 20090101
  7. SLEEP AID [Concomitant]
     Route: 048
     Dates: start: 20100715
  8. ASPIRIN [Concomitant]
     Dosage: 325 MILLIGRAM
     Route: 048
     Dates: start: 20090401
  9. REVLIMID [Suspect]
     Dosage: 10 MILLIGRAM
     Route: 048
     Dates: start: 20110324
  10. PLAVIX [Concomitant]
     Dosage: 75 MILLIGRAM
     Route: 048
     Dates: start: 20090401
  11. ZESTRIL [Concomitant]
     Dosage: 2.5 MILLIGRAM
     Route: 048
     Dates: start: 19980101

REACTIONS (1)
  - CHOLELITHIASIS [None]
